FAERS Safety Report 23706549 (Version 10)
Quarter: 2025Q1

REPORT INFORMATION
  Report Type: Report from Study
  Country: US (occurrence: US)
  Receive Date: 20240404
  Receipt Date: 20250203
  Transmission Date: 20250408
  Serious: Yes (Hospitalization, Other)
  Sender: INSMED
  Company Number: US-INSMED, INC.-2024-00673-US

PATIENT
  Sex: Male

DRUGS (1)
  1. ARIKAYCE [Suspect]
     Active Substance: AMIKACIN
     Indication: Mycobacterium avium complex infection
     Dosage: 590 MILLIGRAM, QD
     Route: 055
     Dates: start: 20240207, end: 202403

REACTIONS (17)
  - Hospitalisation [Unknown]
  - Haematemesis [Recovered/Resolved]
  - Mycobacterium avium complex infection [Not Recovered/Not Resolved]
  - Ill-defined disorder [Unknown]
  - Haemoptysis [Recovering/Resolving]
  - Eye irritation [Not Recovered/Not Resolved]
  - Weight increased [Unknown]
  - Secretion discharge [Not Recovered/Not Resolved]
  - Dysphonia [Not Recovered/Not Resolved]
  - Aphonia [Not Recovered/Not Resolved]
  - Diarrhoea [Not Recovered/Not Resolved]
  - Fatigue [Not Recovered/Not Resolved]
  - Cough [Recovering/Resolving]
  - General physical health deterioration [Unknown]
  - Drug ineffective [Unknown]
  - Device issue [Unknown]
  - Therapy interrupted [Unknown]

NARRATIVE: CASE EVENT DATE: 20240101
